FAERS Safety Report 8505282 (Version 2)
Quarter: 2012Q4

REPORT INFORMATION
  Report Type: 
  Country: SE (occurrence: SE)
  Receive Date: 20120412
  Receipt Date: 20120912
  Transmission Date: 20130627
  Serious: Yes (Death, Hospitalization)
  Sender: FDA-Public Use
  Company Number: SE-SANOFI-AVENTIS-2012SA024471

PATIENT
  Age: 60 Year
  Sex: Male

DRUGS (19)
  1. PLAVIX [Suspect]
  2. UNSPECIFIED INGREDIENT [Suspect]
     Indication: TYPE 2 DIABETES MELLITUS
     Dates: start: 20110414
  3. METFORMIN [Suspect]
     Indication: TYPE 2 DIABETES MELLITUS
     Dates: end: 20110711
  4. INSULIN NOS [Suspect]
     Indication: DIABETES MELLITUS
     Dates: start: 20110718
  5. NOVORAPID [Suspect]
     Indication: DIABETES
     Dates: start: 20110711, end: 20110719
  6. PLACEBO [Suspect]
     Indication: TYPE 2 DIABETES MELLITUS
  7. ASPIRIN [Suspect]
     Dates: end: 20110722
  8. LACTULOSE [Suspect]
     Dates: start: 20110720, end: 20110725
  9. DALTEPARIN SODIUM [Suspect]
     Dates: start: 20110711
  10. SODIUM PICOSULFATE [Suspect]
     Dates: start: 20110712, end: 20110725
  11. OMEPRAZOLE [Concomitant]
     Dates: start: 20110716
  12. FUROSEMIDE [Concomitant]
     Dates: start: 20110711
  13. SPIRONOLACTONE [Concomitant]
     Dates: start: 20110713
  14. OXYCONTIN [Concomitant]
     Dates: start: 20110711
  15. IMPORTAL [Concomitant]
     Dates: start: 20110726
  16. ASPIRIN [Concomitant]
  17. PROPANOLOL [Concomitant]
     Dates: start: 20110811, end: 20110827
  18. NOSKAPIN [Concomitant]
     Dates: start: 20110813, end: 20110818
  19. METOCLOPRAMIDE [Concomitant]
     Dates: start: 20110812, end: 20110818

REACTIONS (12)
  - Sudden cardiac death [Fatal]
  - Pulmonary embolism [Fatal]
  - Inguinal hernia [Recovered/Resolved]
  - Portal vein thrombosis [Not Recovered/Not Resolved]
  - Ascites [Recovering/Resolving]
  - Constipation [Not Recovered/Not Resolved]
  - Haematuria [Recovered/Resolved]
  - Nausea [Not Recovered/Not Resolved]
  - Hepatic cirrhosis [None]
  - Portal hypertension [None]
  - Arrhythmia [None]
  - Right ventricular failure [None]
